FAERS Safety Report 10483288 (Version 2)
Quarter: 2014Q4

REPORT INFORMATION
  Report Type: Spontaneous
  Country: CA (occurrence: CA)
  Receive Date: 20140930
  Receipt Date: 20141028
  Transmission Date: 20150528
  Serious: Yes (Hospitalization, Other)
  Sender: FDA-Public Use
  Company Number: CA-BRISTOL-MYERS SQUIBB COMPANY-21441837

PATIENT
  Age: 65 Year
  Sex: Female
  Weight: 68 kg

DRUGS (19)
  1. DIGOXIN. [Concomitant]
     Active Substance: DIGOXIN
     Indication: CARDIAC FAILURE
  2. PREDNISONE. [Concomitant]
     Active Substance: PREDNISONE
  3. ISOSORBIDE DINITRATE. [Concomitant]
     Active Substance: ISOSORBIDE DINITRATE
  4. COLACE [Concomitant]
     Active Substance: DOCUSATE SODIUM
  5. PANTOPRAZOLE [Concomitant]
     Active Substance: PANTOPRAZOLE SODIUM
  6. CORDARONE [Suspect]
     Active Substance: AMIODARONE HYDROCHLORIDE
     Dosage: 1DF: 200MG (A DAY)
     Dates: end: 20140917
  7. BISOPROLOL [Concomitant]
     Active Substance: BISOPROLOL
  8. ATIVAN [Concomitant]
     Active Substance: LORAZEPAM
  9. DILAUDID [Concomitant]
     Active Substance: HYDROMORPHONE HYDROCHLORIDE
     Indication: FIBROMYALGIA
  10. ONGLYZA [Suspect]
     Active Substance: SAXAGLIPTIN HYDROCHLORIDE
     Indication: DIABETES MELLITUS
     Route: 048
     Dates: start: 20140912
  11. DIAMICRON [Suspect]
     Active Substance: GLICLAZIDE
  12. CALCIUM [Concomitant]
     Active Substance: CALCIUM
  13. SYNTHROID [Concomitant]
     Active Substance: LEVOTHYROXINE SODIUM
  14. FERROUS SULFATE [Concomitant]
     Active Substance: FERROUS SULFATE\FERROUS SULFATE, DRIED
     Indication: ANAEMIA
  15. LASIX [Concomitant]
     Active Substance: FUROSEMIDE
  16. COUMADIN [Concomitant]
     Active Substance: WARFARIN SODIUM
  17. ULORIC [Suspect]
     Active Substance: FEBUXOSTAT
     Indication: GOUT
     Dosage: 1DF: 80MG (A DAY)
     Dates: end: 20140917
  18. VITAMIN D [Concomitant]
     Active Substance: CHOLECALCIFEROL
  19. COLCHICINE. [Concomitant]
     Active Substance: COLCHICINE

REACTIONS (1)
  - Drug-induced liver injury [Recovering/Resolving]

NARRATIVE: CASE EVENT DATE: 201409
